FAERS Safety Report 11871030 (Version 2)
Quarter: 2016Q1

REPORT INFORMATION
  Report Type: Spontaneous
  Country: JP (occurrence: JP)
  Receive Date: 20151228
  Receipt Date: 20160107
  Transmission Date: 20160526
  Serious: Yes (Death, Hospitalization, Other)
  Sender: FDA-Public Use
  Company Number: JP-PFIZER INC-2015464291

PATIENT
  Age: 51 Year
  Sex: Male
  Weight: 63 kg

DRUGS (12)
  1. LEVOLEUCOVORIN CALCIUM [Suspect]
     Active Substance: LEVOLEUCOVORIN CALCIUM
     Dosage: 197.2 MG/M2, 1X/DAY
     Route: 041
     Dates: start: 20140522, end: 20140522
  2. LEVOLEUCOVORIN CALCIUM [Suspect]
     Active Substance: LEVOLEUCOVORIN CALCIUM
     Dosage: 197.2 MG/M2, 1X/DAY
     Route: 041
     Dates: start: 20140619, end: 20140619
  3. ELPLAT [Suspect]
     Active Substance: OXALIPLATIN
     Dosage: 83.8 MG/M2, 1X/DAY
     Route: 041
     Dates: start: 20140619, end: 20140619
  4. 5-FU [Concomitant]
     Active Substance: FLUOROURACIL
     Dosage: 2395.6 MG/M2, 1X/DAY
     Route: 041
     Dates: start: 20140501, end: 20140501
  5. ELPLAT [Suspect]
     Active Substance: OXALIPLATIN
     Dosage: 83.8 MG/M2, 1X/DAY
     Route: 041
     Dates: start: 20140522, end: 20140522
  6. CAMPTO [Suspect]
     Active Substance: IRINOTECAN
     Dosage: 118.3 MG/M2, 1X/DAY
     Route: 041
     Dates: start: 20140619, end: 20140619
  7. CAMPTO [Suspect]
     Active Substance: IRINOTECAN
     Indication: PANCREATIC CARCINOMA
     Dosage: 149.7 MG/M2, 1X/DAY
     Route: 041
     Dates: start: 20140501, end: 20140501
  8. ELPLAT [Suspect]
     Active Substance: OXALIPLATIN
     Indication: PANCREATIC CARCINOMA
     Dosage: 84.8 MG/M2, 1X/DAY
     Route: 041
     Dates: start: 20140501, end: 20140501
  9. CAMPTO [Suspect]
     Active Substance: IRINOTECAN
     Dosage: 118.3 MG/M2, 1X/DAY
     Route: 041
     Dates: start: 20140522, end: 20140522
  10. LEVOLEUCOVORIN CALCIUM [Suspect]
     Active Substance: LEVOLEUCOVORIN CALCIUM
     Indication: PANCREATIC CARCINOMA
     Dosage: 199.6 MG/M2, 1X/DAY
     Route: 041
     Dates: start: 20140501, end: 20140501
  11. 5-FU [Concomitant]
     Active Substance: FLUOROURACIL
     Dosage: 2366.2 MG/M2, 1X/DAY
     Route: 041
     Dates: start: 20140522, end: 20140522
  12. 5-FU [Concomitant]
     Active Substance: FLUOROURACIL
     Dosage: 2366.2 MG/M2, 1X/DAY
     Route: 041
     Dates: start: 20140619, end: 20140619

REACTIONS (7)
  - Disease progression [Fatal]
  - White blood cell count decreased [Recovered/Resolved]
  - Pancreatic carcinoma [Fatal]
  - Hyperglycaemia [Unknown]
  - Neutrophil count decreased [Recovered/Resolved]
  - Platelet count decreased [Recovered/Resolved]
  - Aspartate aminotransferase increased [Recovering/Resolving]

NARRATIVE: CASE EVENT DATE: 20140515
